FAERS Safety Report 5475089-1 (Version None)
Quarter: 2007Q4

REPORT INFORMATION
  Report Type: 
  Country: None (occurrence: None)
  Receive Date: 20071002
  Receipt Date: 20061002
  Transmission Date: 20080405
  Serious: No
  Sender: FDA-Public Use
  Company Number: US-BOEHRINGER INGELHEIM PHARMACEUTICALS, INC.-2006-BP-11535BP

PATIENT
  Sex: Female

DRUGS (3)
  1. MICARDIS HCT [Suspect]
     Indication: HYPERTENSION
     Route: 048
     Dates: start: 20060907
  2. ALEVE [Concomitant]
     Indication: PAIN
  3. IRON SUPPLEMENT [Concomitant]
     Indication: MINERAL SUPPLEMENTATION

REACTIONS (3)
  - DIZZINESS [None]
  - HEADACHE [None]
  - NOCTURIA [None]
